FAERS Safety Report 9298122 (Version 2)
Quarter: 2013Q3

REPORT INFORMATION
  Report Type: Spontaneous
  Country: PR (occurrence: PR)
  Receive Date: 20130520
  Receipt Date: 20130819
  Transmission Date: 20140515
  Serious: Yes (Death, Hospitalization, Disabling)
  Sender: FDA-Public Use
  Company Number: US-ASTELLAS-2013US005176

PATIENT
  Age: 70 Year
  Sex: Male

DRUGS (1)
  1. PROGRAF [Suspect]
     Indication: RENAL TRANSPLANT
     Dosage: 1.5 MG, UID/QD
     Route: 048
     Dates: start: 20120412, end: 20130428

REACTIONS (3)
  - Cardiac arrest [Fatal]
  - Cerebrovascular accident [Unknown]
  - Hemiparesis [Unknown]
